FAERS Safety Report 16292456 (Version 3)
Quarter: 2021Q3

REPORT INFORMATION
  Report Type: Spontaneous
  Country: US (occurrence: US)
  Receive Date: 20190509
  Receipt Date: 20210723
  Transmission Date: 20211014
  Serious: Yes (Other)
  Sender: FDA-Public Use
  Company Number: US-ASTRAZENECA-2019SE62807

PATIENT
  Age: 23677 Day
  Sex: Female
  Weight: 117.9 kg

DRUGS (110)
  1. NEXIUM [Suspect]
     Active Substance: ESOMEPRAZOLE MAGNESIUM
     Indication: GASTROOESOPHAGEAL REFLUX DISEASE
     Dosage: GENERIC
     Route: 065
     Dates: start: 20100212, end: 20190419
  2. PRILOSEC OTC [Suspect]
     Active Substance: OMEPRAZOLE MAGNESIUM
     Indication: GASTROOESOPHAGEAL REFLUX DISEASE
     Route: 048
     Dates: start: 200306, end: 200312
  3. DOXYCYCLINE. [Concomitant]
     Active Substance: DOXYCYCLINE
     Indication: ANTIBIOTIC LEVEL
     Dates: start: 20180108, end: 20190424
  4. SENNA [Concomitant]
     Active Substance: SENNA LEAF\SENNOSIDES\SENNOSIDES A AND B
  5. BYDUREON [Concomitant]
     Active Substance: EXENATIDE
  6. NOVOLIN NOS [Concomitant]
     Active Substance: INSULIN HUMAN
  7. DOXYCYCLINE HYCLATE. [Concomitant]
     Active Substance: DOXYCYCLINE HYCLATE
  8. URSODIOL. [Concomitant]
     Active Substance: URSODIOL
  9. ALBUTEROL. [Concomitant]
     Active Substance: ALBUTEROL
  10. FLUTICASONE. [Concomitant]
     Active Substance: FLUTICASONE
  11. POTASSIUM CHLORIDE. [Concomitant]
     Active Substance: POTASSIUM CHLORIDE
  12. HYDROCORTISONE. [Concomitant]
     Active Substance: HYDROCORTISONE
  13. ROBITUSSIN (GUAIFENESIN) [Concomitant]
     Active Substance: GUAIFENESIN
  14. PHENERGAN [Concomitant]
     Active Substance: PROMETHAZINE HYDROCHLORIDE
  15. ESTROGEN [Concomitant]
     Active Substance: ESTROGENS
  16. MEDROXYPROGEST [Concomitant]
  17. ELASA [Concomitant]
  18. GLIPIZIDE. [Concomitant]
     Active Substance: GLIPIZIDE
  19. CEFAZOLIN [Concomitant]
     Active Substance: CEFAZOLIN
  20. IMIPENEM [Concomitant]
     Active Substance: IMIPENEM
  21. NYSTATIN. [Concomitant]
     Active Substance: NYSTATIN
  22. PRILOSEC [Suspect]
     Active Substance: OMEPRAZOLE MAGNESIUM
     Indication: GASTROOESOPHAGEAL REFLUX DISEASE
     Route: 048
     Dates: start: 2011, end: 2016
  23. VENLAFAXINE [Concomitant]
     Active Substance: VENLAFAXINE HYDROCHLORIDE
  24. ALCOHOL. [Concomitant]
     Active Substance: ALCOHOL
  25. BUT/APAP/CAFF [Concomitant]
  26. AMITRIPTYLINE [Concomitant]
     Active Substance: AMITRIPTYLINE
  27. XANAX [Concomitant]
     Active Substance: ALPRAZOLAM
  28. RESTORIL [Concomitant]
     Active Substance: TEMAZEPAM
  29. ALDACTONE [Concomitant]
     Active Substance: SPIRONOLACTONE
  30. PINETHION [Concomitant]
  31. FERRITIN [Concomitant]
     Active Substance: FERRITIN
  32. NEXIUM [Suspect]
     Active Substance: ESOMEPRAZOLE MAGNESIUM
     Indication: GASTROOESOPHAGEAL REFLUX DISEASE
     Route: 048
     Dates: start: 199501, end: 201603
  33. NEXIUM [Suspect]
     Active Substance: ESOMEPRAZOLE MAGNESIUM
     Indication: GASTROOESOPHAGEAL REFLUX DISEASE
     Route: 048
     Dates: start: 199501, end: 201603
  34. ACETAZOLAMIDE. [Concomitant]
     Active Substance: ACETAZOLAMIDE
  35. GABAPENTIN. [Concomitant]
     Active Substance: GABAPENTIN
  36. MIRTAZAPINE. [Concomitant]
     Active Substance: MIRTAZAPINE
  37. CARVEDILOL. [Concomitant]
     Active Substance: CARVEDILOL
  38. CHLORHEXIDINE [Concomitant]
     Active Substance: CHLORHEXIDINE
  39. VITAMIN C [Concomitant]
     Active Substance: ASCORBIC ACID
  40. DICLOFENAC [Concomitant]
     Active Substance: DICLOFENAC
  41. LOSARTAN. [Concomitant]
     Active Substance: LOSARTAN
  42. IBUPROFEN. [Concomitant]
     Active Substance: IBUPROFEN
  43. ZESTRIL [Concomitant]
     Active Substance: LISINOPRIL
  44. EFFEXOR [Concomitant]
     Active Substance: VENLAFAXINE HYDROCHLORIDE
  45. ANUSOL NOS [Concomitant]
     Active Substance: BALSAM PERU\BENZYL BENZOATE\BISMUTH HYDROXIDE\BISMUTH SUBGALLATE\HYDROCORTISONE ACETATE\ZINC OXIDE
  46. GLYCERIN. [Concomitant]
     Active Substance: GLYCERIN
  47. HYDROCODONE BITARTRATE AND ACETAMINOPHEN [Concomitant]
     Active Substance: ACETAMINOPHEN\HYDROCODONE BITARTRATE
  48. GLUCOCARD [Concomitant]
  49. ATORVASTATIN [Concomitant]
     Active Substance: ATORVASTATIN
  50. VITAMIN D [Concomitant]
     Active Substance: VITAMIN D NOS
  51. ASPIRIN. [Concomitant]
     Active Substance: ASPIRIN
  52. INCRUSE ELLIPTA [Concomitant]
     Active Substance: UMECLIDINIUM BROMIDE
  53. LEVOTHYROXINE. [Concomitant]
     Active Substance: LEVOTHYROXINE
  54. MYCOLOG [Concomitant]
     Active Substance: GRAMICIDIN\NEOMYCIN SULFATE\NYSTATIN\TRIAMCINOLONE ACETONIDE
  55. IMODIUM [Concomitant]
     Active Substance: LOPERAMIDE HYDROCHLORIDE
  56. CARDURA [Concomitant]
     Active Substance: DOXAZOSIN MESYLATE
  57. SYNTHROID [Concomitant]
     Active Substance: LEVOTHYROXINE SODIUM
  58. DIABETA [Concomitant]
     Active Substance: GLYBURIDE
  59. FENOFIBRATE. [Concomitant]
     Active Substance: FENOFIBRATE
  60. TOBRAMYCIN. [Concomitant]
     Active Substance: TOBRAMYCIN
  61. ONDANSETRON [Concomitant]
     Active Substance: ONDANSETRON
     Indication: NAUSEA
     Dates: start: 20180107, end: 20190422
  62. BENADRYL [Concomitant]
     Active Substance: DIPHENHYDRAMINE HYDROCHLORIDE
     Indication: SINUS CONGESTION
     Dates: start: 2014
  63. MYLANTA [Concomitant]
     Active Substance: ALUMINUM HYDROXIDE\DIMETHICONE\MAGNESIUM HYDROXIDE
  64. CODEINE [Concomitant]
     Active Substance: CODEINE
  65. ELAVIL [Concomitant]
     Active Substance: AMITRIPTYLINE HYDROCHLORIDE
  66. LASIX [Concomitant]
     Active Substance: FUROSEMIDE
  67. MAXAIR [Concomitant]
     Active Substance: PIRBUTEROL ACETATE
  68. MUCINEX [Concomitant]
     Active Substance: GUAIFENESIN
  69. AMLODIPINE [Concomitant]
     Active Substance: AMLODIPINE BESYLATE
  70. LEVEMIR [Concomitant]
     Active Substance: INSULIN DETEMIR
  71. TRAMADOL. [Concomitant]
     Active Substance: TRAMADOL
  72. VITAMIN B12 [Concomitant]
     Active Substance: CYANOCOBALAMIN
  73. DOBUTAMINE [Concomitant]
     Active Substance: DOBUTAMINE HYDROCHLORIDE
  74. ANTACID [Concomitant]
     Active Substance: ALUMINUM HYDROXIDE\CALCIUM CARBONATE\DIMETHICONE\MAGNESIUM HYDROXIDE
  75. TRIAMTERENE. [Concomitant]
     Active Substance: TRIAMTERENE
  76. SODIUM CHLORIDE. [Concomitant]
     Active Substance: SODIUM CHLORIDE
  77. ACETAMINOPHEN. [Concomitant]
     Active Substance: ACETAMINOPHEN
  78. PROPOXYPHENE HCL [Concomitant]
     Active Substance: PROPOXYPHENE HYDROCHLORIDE
  79. AVADIA [Concomitant]
  80. TROPONIN [Concomitant]
  81. MORPHINE SULPHATE [Concomitant]
     Active Substance: MORPHINE SULFATE
  82. METOLAZONE. [Concomitant]
     Active Substance: METOLAZONE
  83. METFORMIN [Concomitant]
     Active Substance: METFORMIN HYDROCHLORIDE
  84. AMOXICILLIN/CLAVULANATE [Concomitant]
     Active Substance: AMOXICILLIN\CLAVULANATE POTASSIUM
  85. PRILOSEC [Suspect]
     Active Substance: OMEPRAZOLE MAGNESIUM
     Indication: GASTROOESOPHAGEAL REFLUX DISEASE
     Route: 048
     Dates: start: 199501, end: 201603
  86. CLONAZEPAM. [Concomitant]
     Active Substance: CLONAZEPAM
     Indication: ANXIETY
     Dates: start: 20180108, end: 20190422
  87. HYDROCODONE [Concomitant]
     Active Substance: HYDROCODONE
     Indication: PAIN
     Dates: start: 20180107, end: 20190424
  88. METHYLPREDNISOLONE. [Concomitant]
     Active Substance: METHYLPREDNISOLONE
  89. NITROGLYCERIN. [Concomitant]
     Active Substance: NITROGLYCERIN
  90. FLORASTOR [Concomitant]
     Active Substance: SACCHAROMYCES CEREVISIAE
  91. IODINE. [Concomitant]
     Active Substance: IODINE
  92. MAALOX ANTACID [Concomitant]
     Active Substance: ALUMINUM HYDROXIDE\DIMETHICONE\MAGNESIUM HYDROXIDE
  93. THERACCINE [Concomitant]
  94. BUMEX [Concomitant]
     Active Substance: BUMETANIDE
  95. BISACODYL. [Concomitant]
     Active Substance: BISACODYL
  96. DIOVAN [Concomitant]
     Active Substance: VALSARTAN
  97. BENAZEPRIL [Concomitant]
     Active Substance: BENAZEPRIL HYDROCHLORIDE
  98. NEXIUM [Suspect]
     Active Substance: ESOMEPRAZOLE MAGNESIUM
     Indication: GASTROOESOPHAGEAL REFLUX DISEASE
     Dosage: GENERIC
     Route: 065
     Dates: start: 20100212, end: 20190419
  99. PRILOSEC OTC [Suspect]
     Active Substance: OMEPRAZOLE MAGNESIUM
     Indication: GASTROOESOPHAGEAL REFLUX DISEASE
     Route: 048
     Dates: start: 199501, end: 201603
  100. LEVOFLOXACIN. [Concomitant]
     Active Substance: LEVOFLOXACIN
  101. BACLOFEN. [Concomitant]
     Active Substance: BACLOFEN
  102. METOCLOPRAMIDE. [Concomitant]
     Active Substance: METOCLOPRAMIDE
  103. DROPERIDOL. [Concomitant]
     Active Substance: DROPERIDOL
  104. AVANDIA [Concomitant]
     Active Substance: ROSIGLITAZONE MALEATE
  105. ENOXAPARIN [Concomitant]
     Active Substance: ENOXAPARIN
  106. ROSIGLITAZONE [Concomitant]
     Active Substance: ROSIGLITAZONE
  107. PANTOPRAZOLE SODIUM. [Concomitant]
     Active Substance: PANTOPRAZOLE SODIUM
  108. PIPERACILLIN. [Concomitant]
     Active Substance: PIPERACILLIN SODIUM
  109. TRIMETHOPRIM. [Concomitant]
     Active Substance: TRIMETHOPRIM
  110. MAGNESIUM OXIDE. [Concomitant]
     Active Substance: MAGNESIUM OXIDE

REACTIONS (4)
  - Chronic kidney disease [Not Recovered/Not Resolved]
  - Renal tubular necrosis [Unknown]
  - Acute kidney injury [Unknown]
  - Renal failure [Not Recovered/Not Resolved]

NARRATIVE: CASE EVENT DATE: 20110302
